FAERS Safety Report 10413524 (Version 1)
Quarter: 2014Q3

REPORT INFORMATION
  Report Type: Spontaneous
  Country: CN (occurrence: CN)
  Receive Date: 20140827
  Receipt Date: 20140827
  Transmission Date: 20150326
  Serious: Yes (Other)
  Sender: FDA-Public Use
  Company Number: CN-BAXTER-2014BAX049632

PATIENT
  Age: 76 Year
  Sex: Male
  Weight: 73 kg

DRUGS (2)
  1. 5% GLUCOSE  INJECTION [Suspect]
     Active Substance: DEXTROSE
     Indication: PARENTERAL NUTRITION
     Route: 041
     Dates: start: 20140109, end: 20140114
  2. MEDIUM AND LONG CHAIN FAT EMULSION INJECTION [Suspect]
     Active Substance: LIPOSYN (R) INTRAVENOUS FAT EMULSION
     Indication: PARENTERAL NUTRITION
     Route: 041
     Dates: start: 20140111, end: 20140114

REACTIONS (2)
  - Hyperpyrexia [Recovered/Resolved]
  - Chills [Recovered/Resolved]

NARRATIVE: CASE EVENT DATE: 20140114
